FAERS Safety Report 5749504-X (Version None)
Quarter: 2008Q2

REPORT INFORMATION
  Report Type: 
  Country: None (occurrence: None)
  Receive Date: 20080522
  Receipt Date: 20080522
  Transmission Date: 20081010
  Serious: Yes (Other)
  Sender: FDA-Public Use
  Company Number: None

PATIENT
  Sex: Female
  Weight: 60.3284 kg

DRUGS (2)
  1. CLEOCIN [Suspect]
     Indication: SINUSITIS
     Dosage: 38 MG. ONCE PO
     Route: 048
     Dates: start: 19950315, end: 19950315
  2. PREDNISONE TAB [Suspect]
     Indication: URTICARIA
     Dosage: TWICE IM
     Route: 030
     Dates: start: 19950316, end: 19950316

REACTIONS (3)
  - PRURITUS [None]
  - THERAPY REGIMEN CHANGED [None]
  - URTICARIA [None]
